FAERS Safety Report 5034419-5 (Version None)
Quarter: 2006Q2

REPORT INFORMATION
  Report Type: 
  Country: None (occurrence: None)
  Receive Date: 20060620
  Receipt Date: 20060606
  Transmission Date: 20061013
  Serious: Yes (Death)
  Sender: FDA-Public Use
  Company Number: A-CH2006-11920

PATIENT
  Age: 58 Year
  Sex: Male

DRUGS (7)
  1. TRACLEER [Suspect]
     Indication: PULMONARY HYPERTENSION
     Dosage: SEE IMAGE, ORAL
     Route: 048
     Dates: start: 20040501, end: 20040528
  2. TRACLEER [Suspect]
     Indication: PULMONARY HYPERTENSION
     Dosage: SEE IMAGE, ORAL
     Route: 048
     Dates: start: 20040529, end: 20060310
  3. DEPAKENE [Concomitant]
  4. BUMETANIDE [Concomitant]
  5. DIPYRIDAMOLE [Concomitant]
  6. ALLOPURINOL [Concomitant]
  7. LANOXIN [Concomitant]

REACTIONS (1)
  - SUDDEN DEATH [None]
